FAERS Safety Report 7933963-8 (Version None)
Quarter: 2011Q4

REPORT INFORMATION
  Report Type: 
  Country: None (occurrence: None)
  Receive Date: 20111118
  Receipt Date: 20111111
  Transmission Date: 20120403
  Serious: Yes (Hospitalization, Other)
  Sender: FDA-Public Use
  Company Number: INT_00037_2011

PATIENT
  Age: 20 Month
  Sex: Male

DRUGS (2)
  1. CEFTRIAXONE [Suspect]
     Indication: SEPSIS
     Dosage: (DF INTRAVENOUS (NOT OTHERWISE SPECIFIED))
     Route: 042
  2. AMIKACIN [Concomitant]

REACTIONS (11)
  - SHOCK [None]
  - PRURITUS [None]
  - HYPOTONIA [None]
  - BRONCHOSPASM [None]
  - GRAND MAL CONVULSION [None]
  - METABOLIC ACIDOSIS [None]
  - RESPIRATORY DISTRESS [None]
  - PAPULE [None]
  - SEPSIS [None]
  - RENAL IMPAIRMENT [None]
  - HAEMOLYTIC ANAEMIA [None]
